FAERS Safety Report 8187321-4 (Version None)
Quarter: 2012Q1

REPORT INFORMATION
  Report Type: 
  Country: None (occurrence: None)
  Receive Date: 20120306
  Receipt Date: 20120229
  Transmission Date: 20120608
  Serious: Yes (Other)
  Sender: FDA-Public Use
  Company Number: US-PFIZER INC-2012054393

PATIENT
  Sex: Female
  Weight: 53.515 kg

DRUGS (2)
  1. LYRICA [Suspect]
     Indication: NERVE BLOCK
  2. LYRICA [Suspect]
     Indication: PAIN
     Dosage: 200 MG, 2X/DAY
     Route: 048
     Dates: start: 20070101

REACTIONS (2)
  - ARTHROPATHY [None]
  - MENISCUS LESION [None]
